FAERS Safety Report 4522878-3 (Version None)
Quarter: 2004Q4

REPORT INFORMATION
  Report Type: 
  Country: None (occurrence: None)
  Receive Date: 20041208
  Receipt Date: 20041122
  Transmission Date: 20050328
  Serious: Yes (Hospitalization)
  Sender: FDA-Public Use
  Company Number: S04-SWE-07890-02

PATIENT
  Age: 0 Day
  Sex: Female

DRUGS (2)
  1. CIPRALEX (ESCITALOPRAM) [Suspect]
     Dates: start: 20040101, end: 20040911
  2. VALPROIC ACID [Suspect]
     Dates: start: 20040101, end: 20040911

REACTIONS (12)
  - BODY TEMPERATURE INCREASED [None]
  - CONGENITAL HIP DEFORMITY [None]
  - DRUG EXPOSURE DURING PREGNANCY [None]
  - DRUG WITHDRAWAL SYNDROME NEONATAL [None]
  - HYPERREFLEXIA [None]
  - HYPERTENSION NEONATAL [None]
  - HYPERTONIA NEONATAL [None]
  - IRRITABILITY [None]
  - NEONATAL DISORDER [None]
  - NERVOUSNESS [None]
  - SCREAMING [None]
  - TREMOR NEONATAL [None]
